FAERS Safety Report 12040426 (Version 1)
Quarter: 2016Q1

REPORT INFORMATION
  Report Type: Report from Study
  Country: BR (occurrence: BR)
  Receive Date: 20160208
  Receipt Date: 20160208
  Transmission Date: 20160526
  Serious: Yes (Other)
  Sender: FDA-Public Use
  Company Number: BR-JNJFOC-20160203164

PATIENT
  Sex: Female

DRUGS (1)
  1. REMICADE [Suspect]
     Active Substance: INFLIXIMAB
     Indication: CROHN^S DISEASE
     Route: 042
     Dates: end: 2015

REACTIONS (3)
  - Asphyxia [Unknown]
  - Dyspnoea [Unknown]
  - Infusion related reaction [Unknown]

NARRATIVE: CASE EVENT DATE: 2015
